FAERS Safety Report 4698353-2 (Version None)
Quarter: 2005Q2

REPORT INFORMATION
  Report Type: 
  Country: None (occurrence: None)
  Receive Date: 20050621
  Receipt Date: 20050606
  Transmission Date: 20051028
  Serious: Yes (Other)
  Sender: FDA-Public Use
  Company Number: 8010830

PATIENT
  Sex: Female

DRUGS (6)
  1. KEPPRA [Suspect]
     Dosage: TRP
     Dates: start: 20040502
  2. KEPPRA [Suspect]
     Dosage: TRM
  3. TEGRETOL [Suspect]
     Dosage: TRP
     Dates: start: 20040502
  4. TEGRETOL [Suspect]
     Dosage: TRM
  5. VALIUM [Suspect]
     Dosage: TRP
     Dates: start: 20040502
  6. VALIUM [Suspect]
     Dosage: TRM

REACTIONS (3)
  - DRUG EXPOSURE DURING PREGNANCY [None]
  - DRUG EXPOSURE VIA BREAST MILK [None]
  - PREMATURE BABY [None]
